FAERS Safety Report 10018926 (Version 3)
Quarter: 2015Q1

REPORT INFORMATION
  Report Type: Spontaneous
  Country: US (occurrence: US)
  Receive Date: 20140318
  Receipt Date: 20150130
  Transmission Date: 20150720
  Serious: Yes (Other)
  Sender: FDA-Public Use
  Company Number: US-GLAXOSMITHKLINE-A1064125A

PATIENT
  Sex: Female

DRUGS (18)
  1. METHOCARBAMOL. [Concomitant]
     Active Substance: METHOCARBAMOL
  2. ADVAIR HFA [Suspect]
     Active Substance: FLUTICASONE PROPIONATE\SALMETEROL XINAFOATE
     Indication: CHRONIC OBSTRUCTIVE PULMONARY DISEASE
     Dosage: 1 DF, BID
     Route: 055
     Dates: start: 201106
  3. NAPROXEN. [Concomitant]
     Active Substance: NAPROXEN
  4. OMEPRAZOLE. [Concomitant]
     Active Substance: OMEPRAZOLE
  5. FLONASE [Concomitant]
     Active Substance: FLUTICASONE PROPIONATE
  6. FUROSEMIDE. [Concomitant]
     Active Substance: FUROSEMIDE
  7. PREDNISONE. [Concomitant]
     Active Substance: PREDNISONE
  8. ADVAIR HFA [Suspect]
     Active Substance: FLUTICASONE PROPIONATE\SALMETEROL XINAFOATE
     Indication: ASTHMA
     Dosage: 1 DF, QD
     Route: 055
     Dates: start: 2011
  9. VENTOLIN [Suspect]
     Active Substance: ALBUTEROL SULFATE
     Indication: PRODUCT USED FOR UNKNOWN INDICATION
     Dosage: 90 MCG, UNKNOWN DOSING
     Route: 065
     Dates: start: 20110802
  10. ALBUTEROL. [Concomitant]
     Active Substance: ALBUTEROL
  11. IPRATROPIUM BROMIDE. [Concomitant]
     Active Substance: IPRATROPIUM BROMIDE
  12. CITALOPRAM [Concomitant]
     Active Substance: CITALOPRAM HYDROBROMIDE
  13. IBUPROFEN. [Concomitant]
     Active Substance: IBUPROFEN
  14. RANITIDINE [Concomitant]
     Active Substance: RANITIDINE\RANITIDINE HYDROCHLORIDE
  15. CYCLOBENZAPRINE [Concomitant]
     Active Substance: CYCLOBENZAPRINE
  16. COMBIVENT [Concomitant]
     Active Substance: ALBUTEROL SULFATE\IPRATROPIUM BROMIDE
  17. TRAMADOL [Concomitant]
     Active Substance: TRAMADOL
  18. LORAZEPAM. [Concomitant]
     Active Substance: LORAZEPAM

REACTIONS (27)
  - Multiple sclerosis [Unknown]
  - Oropharyngeal pain [Unknown]
  - Tooth extraction [Unknown]
  - Dyspnoea [Unknown]
  - Wheezing [Unknown]
  - Osteoporosis [Not Recovered/Not Resolved]
  - Muscle spasms [Not Recovered/Not Resolved]
  - Throat irritation [Unknown]
  - Therapy cessation [Unknown]
  - Arthralgia [Not Recovered/Not Resolved]
  - Tooth disorder [Recovered/Resolved]
  - Oropharyngeal candidiasis [Recovering/Resolving]
  - Visual acuity reduced [Unknown]
  - Pain in jaw [Unknown]
  - Overdose [Not Recovered/Not Resolved]
  - Malaise [Not Recovered/Not Resolved]
  - Blood calcium decreased [Recovered/Resolved]
  - Drug ineffective [Unknown]
  - Dry mouth [Unknown]
  - Eye pain [Unknown]
  - Candida infection [Recovered/Resolved]
  - Off label use [Unknown]
  - Dizziness [Unknown]
  - Dyspnoea exertional [Not Recovered/Not Resolved]
  - Cough [Unknown]
  - Emphysema [Unknown]
  - Drug administration error [Unknown]

NARRATIVE: CASE EVENT DATE: 2011
